FAERS Safety Report 22597582 (Version 3)
Quarter: 2023Q4

REPORT INFORMATION
  Report Type: Report from Study
  Country: US (occurrence: US)
  Receive Date: 20230614
  Receipt Date: 20231031
  Transmission Date: 20240110
  Serious: Yes (Life-Threatening, Hospitalization, Other)
  Sender: FDA-Public Use
  Company Number: US-Merck Healthcare KGaA-9408240

PATIENT
  Age: 62 Year
  Sex: Male

DRUGS (2)
  1. SEROSTIM [Suspect]
     Active Substance: SOMATROPIN
     Indication: Product used for unknown indication
     Dates: start: 20220101
  2. SEROSTIM [Suspect]
     Active Substance: SOMATROPIN
     Dates: start: 20230101, end: 20231025

REACTIONS (14)
  - Cardio-respiratory arrest [Unknown]
  - Hypothyroidism [Unknown]
  - Cerebrovascular accident [Recovered/Resolved with Sequelae]
  - Colon cancer [Unknown]
  - Nerve compression [Unknown]
  - Muscle atrophy [Unknown]
  - Procedural complication [Unknown]
  - Hemiplegia [Unknown]
  - Carpal tunnel syndrome [Unknown]
  - Spinal cord operation [Unknown]
  - Hip arthroplasty [Unknown]
  - Toe operation [Unknown]
  - Procedural pain [Unknown]
  - Blood growth hormone decreased [Unknown]
